FAERS Safety Report 6564590-5 (Version None)
Quarter: 2010Q1

REPORT INFORMATION
  Report Type: 
  Country: None (occurrence: None)
  Receive Date: 20100201
  Receipt Date: 20100120
  Transmission Date: 20100710
  Serious: Yes (Other)
  Sender: FDA-Public Use
  Company Number: PHHY2009DE50384

PATIENT
  Sex: Female

DRUGS (1)
  1. ACLASTA [Suspect]
     Dosage: 5 MG/ 100 ML
     Route: 042
     Dates: start: 20091021, end: 20091021

REACTIONS (4)
  - EPILEPSY [None]
  - FALL [None]
  - THORACIC VERTEBRAL FRACTURE [None]
  - TOOTH FRACTURE [None]
